FAERS Safety Report 5898617-0 (Version None)
Quarter: 2008Q3

REPORT INFORMATION
  Report Type: 
  Country: None (occurrence: None)
  Receive Date: 20080925
  Receipt Date: 20080228
  Transmission Date: 20090109
  Serious: No
  Sender: FDA-Public Use
  Company Number: A0712472A

PATIENT
  Age: 44 Year
  Sex: Female

DRUGS (3)
  1. WELLBUTRIN XL [Suspect]
     Indication: PAIN
     Dosage: 300MG PER DAY
     Route: 048
     Dates: start: 20060101, end: 20080223
  2. LYRICA [Concomitant]
  3. CYMBALTA [Concomitant]

REACTIONS (4)
  - FEELING ABNORMAL [None]
  - FEELING OF BODY TEMPERATURE CHANGE [None]
  - MIGRAINE [None]
  - NAUSEA [None]
